FAERS Safety Report 22229887 (Version 4)
Quarter: 2024Q3

REPORT INFORMATION
  Report Type: Report from Study
  Country: US (occurrence: US)
  Receive Date: 20230419
  Receipt Date: 20240831
  Transmission Date: 20241016
  Serious: Yes (Hospitalization)
  Sender: TAKEDA
  Company Number: US-TAKEDA-2023TUS005093

PATIENT
  Age: 68 Year
  Sex: Female
  Weight: 104 kg

DRUGS (6)
  1. PONATINIB [Suspect]
     Active Substance: PONATINIB
     Indication: Chronic myeloid leukaemia
     Dosage: 15 MILLIGRAM, QD
     Route: 065
     Dates: start: 202203, end: 20230323
  2. PONATINIB [Suspect]
     Active Substance: PONATINIB
     Indication: Acute myeloid leukaemia
     Dosage: 15 MILLIGRAM, QD
     Route: 048
     Dates: end: 20230821
  3. PONATINIB [Suspect]
     Active Substance: PONATINIB
     Indication: Pancytopenia
     Dosage: 15 MILLIGRAM, QD
     Route: 048
  4. PONATINIB [Suspect]
     Active Substance: PONATINIB
     Dosage: 15 MILLIGRAM, QD
     Route: 048
  5. ACYCLOVIR [Concomitant]
     Active Substance: ACYCLOVIR
     Dosage: UNK
     Route: 065
  6. LEVOFLOXACIN [Concomitant]
     Active Substance: LEVOFLOXACIN
     Dosage: UNK
     Route: 065

REACTIONS (6)
  - Hospitalisation [Unknown]
  - Hepatic enzyme decreased [Not Recovered/Not Resolved]
  - Fall [Recovering/Resolving]
  - Upper limb fracture [Recovering/Resolving]
  - Product dose omission issue [Unknown]
  - Off label use [Unknown]

NARRATIVE: CASE EVENT DATE: 20230115
